FAERS Safety Report 23294123 (Version 1)
Quarter: 2023Q4

REPORT INFORMATION
  Report Type: Spontaneous
  Country: US (occurrence: None)
  Receive Date: 20231213
  Receipt Date: 20231213
  Transmission Date: 20240110
  Serious: Yes (Death)
  Sender: FDA-Public Use
  Company Number: None

PATIENT
  Age: 64 Year
  Sex: Male

DRUGS (13)
  1. MEKINIST [Suspect]
     Active Substance: TRAMETINIB DIMETHYL SULFOXIDE
     Indication: Non-small cell lung cancer
     Dosage: FREQUENCY : DAILY;?
     Route: 048
     Dates: start: 20231109
  2. TAFINLAR [Suspect]
     Active Substance: DABRAFENIB MESYLATE
     Indication: Non-small cell lung cancer
     Dosage: FREQUENCY : DAILY;?
     Route: 048
     Dates: start: 20231109
  3. ALBUTEROL HFA INH [Concomitant]
  4. AMLODIPINE/OLMES MEDOXOM [Concomitant]
  5. CARVEDILOL [Concomitant]
     Active Substance: CARVEDILOL
  6. IBUPROFEN [Concomitant]
     Active Substance: IBUPROFEN
  7. IBUPROFEN [Concomitant]
     Active Substance: IBUPROFEN
  8. LANTUS SOLOSTAR [Concomitant]
     Active Substance: INSULIN GLARGINE
  9. LATANOPROST 0.005% OPHTH SOLN [Concomitant]
  10. MIRTAZAPINE [Concomitant]
     Active Substance: MIRTAZAPINE
  11. MIRTAZAPINE [Concomitant]
     Active Substance: MIRTAZAPINE
  12. TIMOLOL MALEATE 0.5% OPHTH SOLN [Concomitant]
  13. VITAMIN D SOFTGELS F/N [Concomitant]

REACTIONS (1)
  - Death [None]
